FAERS Safety Report 25913533 (Version 1)
Quarter: 2025Q4

REPORT INFORMATION
  Report Type: Report from Study
  Country: US (occurrence: US)
  Receive Date: 20251013
  Receipt Date: 20251013
  Transmission Date: 20260118
  Serious: No
  Sender: ACADIA PHARMACEUTICALS
  Company Number: US-ACADIA PHARMACEUTICALS INC.-ACA-2025-PIM-011085

PATIENT
  Sex: Male

DRUGS (12)
  1. NUPLAZID [Suspect]
     Active Substance: PIMAVANSERIN TARTRATE
     Indication: Product used for unknown indication
     Dosage: 34 MILLIGRAM, QD
     Route: 048
     Dates: start: 20250814
  2. CARVEDILOL [Concomitant]
     Active Substance: CARVEDILOL
  3. DONEPEZIL [Concomitant]
     Active Substance: DONEPEZIL
  4. MEMANTINE [Concomitant]
     Active Substance: MEMANTINE
  5. VITAMINS [Concomitant]
     Active Substance: VITAMINS
  6. NIFEDIPINE [Concomitant]
     Active Substance: NIFEDIPINE
     Dosage: ER
  7. OMEPRAZOLE [Concomitant]
     Active Substance: OMEPRAZOLE
  8. QUETIAPINE [Concomitant]
     Active Substance: QUETIAPINE
     Dosage: 25 MILLIGRAM
  9. QUETIAPINE [Concomitant]
     Active Substance: QUETIAPINE
     Dosage: 50 MILLIGRAM
  10. SILODOSIN [Concomitant]
     Active Substance: SILODOSIN
  11. TRAZODONE [Concomitant]
     Active Substance: TRAZODONE HYDROCHLORIDE
  12. TYLENOL [Concomitant]
     Active Substance: ACETAMINOPHEN

REACTIONS (1)
  - Aggression [Unknown]
